FAERS Safety Report 9743998 (Version 1)
Quarter: 2013Q4

REPORT INFORMATION
  Report Type: Spontaneous
  Country: US (occurrence: US)
  Receive Date: 20131210
  Receipt Date: 20131210
  Transmission Date: 20140711
  Serious: No
  Sender: FDA-Public Use
  Company Number: US-BIOGENIDEC-2013BI100015

PATIENT
  Age: 32 Year
  Sex: Female

DRUGS (1)
  1. TECFIDERA [Suspect]
     Indication: MULTIPLE SCLEROSIS
     Route: 048
     Dates: start: 20130731, end: 20131007

REACTIONS (5)
  - Fatigue [Unknown]
  - Coordination abnormal [Unknown]
  - Hypoaesthesia [Unknown]
  - Abdominal pain upper [Unknown]
  - Diarrhoea [Unknown]
